FAERS Safety Report 24642856 (Version 1)
Quarter: 2024Q4

REPORT INFORMATION
  Report Type: Spontaneous
  Country: IN (occurrence: IN)
  Receive Date: 20241120
  Receipt Date: 20241120
  Transmission Date: 20250114
  Serious: Yes (Other)
  Sender: PFIZER
  Company Number: IN-PFIZER INC-PV202400088937

PATIENT
  Age: 75 Year
  Sex: Female
  Weight: 52.4 kg

DRUGS (3)
  1. DACOMITINIB [Suspect]
     Active Substance: DACOMITINIB
     Indication: Lung adenocarcinoma
     Dosage: 45 MG, 1X/DAY
     Route: 048
     Dates: start: 20230929
  2. DACOMITINIB [Suspect]
     Active Substance: DACOMITINIB
     Dosage: 1-AFTER BREAKFAST, (1-0-0) AFTER FOOD, DAILY, FOR 1 MONTH
     Route: 048
     Dates: start: 20240224
  3. MUPIROCIN [Concomitant]
     Active Substance: MUPIROCIN
     Dosage: 5 MG, 2X/DAY
     Route: 061

REACTIONS (12)
  - Carcinoembryonic antigen increased [Unknown]
  - Heart rate increased [Unknown]
  - Onychoclasis [Recovered/Resolved]
  - Onychalgia [Recovered/Resolved]
  - Nail disorder [Recovered/Resolved]
  - Diarrhoea [Recovered/Resolved]
  - Skin toxicity [Recovered/Resolved]
  - Paronychia [Unknown]
  - Ocular hyperaemia [Unknown]
  - Lacrimation increased [Unknown]
  - Blood pressure increased [Unknown]
  - Conjunctivitis [Unknown]

NARRATIVE: CASE EVENT DATE: 20231206
